FAERS Safety Report 7795731-X (Version None)
Quarter: 2011Q4

REPORT INFORMATION
  Report Type: 
  Country: None (occurrence: None)
  Receive Date: 20111004
  Receipt Date: 20110928
  Transmission Date: 20120403
  Serious: Yes (Other)
  Sender: FDA-Public Use
  Company Number: GB-BRISTOL-MYERS SQUIBB COMPANY-16117772

PATIENT
  Age: 39 Year
  Sex: Male

DRUGS (3)
  1. RITONAVIR [Suspect]
  2. TRUVADA [Suspect]
  3. REYATAZ [Suspect]
     Dates: start: 20090101

REACTIONS (2)
  - GLOMERULAR FILTRATION RATE DECREASED [None]
  - VIRAL LOAD INCREASED [None]
